FAERS Safety Report 16043531 (Version 3)
Quarter: 2019Q2

REPORT INFORMATION
  Report Type: Spontaneous
  Country: US (occurrence: US)
  Receive Date: 20190306
  Receipt Date: 20190502
  Transmission Date: 20190711
  Serious: Yes (Other)
  Sender: FDA-Public Use
  Company Number: US-GLAXOSMITHKLINE-US2019037737

PATIENT
  Sex: Female

DRUGS (6)
  1. COREG CR [Suspect]
     Active Substance: CARVEDILOL PHOSPHATE
     Indication: EJECTION FRACTION DECREASED
  2. CARVEDILOL. [Suspect]
     Active Substance: CARVEDILOL
     Indication: EJECTION FRACTION DECREASED
  3. COREG CR [Suspect]
     Active Substance: CARVEDILOL PHOSPHATE
     Indication: HEART INJURY
     Dosage: UNK UNK, U
  4. CARVEDILOL. [Suspect]
     Active Substance: CARVEDILOL
     Indication: HEART INJURY
     Dosage: UNK UNK, U
     Dates: start: 2007
  5. COREG [Suspect]
     Active Substance: CARVEDILOL
     Indication: EJECTION FRACTION DECREASED
  6. COREG [Suspect]
     Active Substance: CARVEDILOL
     Indication: HEART INJURY
     Dosage: 6.25 MG, QD
     Dates: start: 2006

REACTIONS (12)
  - Cardiac failure [Unknown]
  - Dizziness [Unknown]
  - Adverse drug reaction [Unknown]
  - Myalgia [Not Recovered/Not Resolved]
  - Neuropathy peripheral [Unknown]
  - Product availability issue [Unknown]
  - Drug intolerance [Unknown]
  - Off label use [Unknown]
  - Inappropriate schedule of product administration [Unknown]
  - Product substitution issue [Unknown]
  - Underdose [Unknown]
  - Burning sensation [Unknown]
